FAERS Safety Report 7501336-8 (Version None)
Quarter: 2011Q2

REPORT INFORMATION
  Report Type: 
  Country: None (occurrence: None)
  Receive Date: 20110524
  Receipt Date: 20110518
  Transmission Date: 20111010
  Serious: Yes (Other)
  Sender: FDA-Public Use
  Company Number: JP-PFIZER INC-2011088292

PATIENT
  Age: 70 Year
  Sex: Female

DRUGS (3)
  1. TRYPTANOL [Concomitant]
     Dosage: 30 MG, 1X/DAY
     Route: 048
  2. LYRICA [Suspect]
     Indication: POST HERPETIC NEURALGIA
     Dosage: 150 MG DAILY
     Route: 048
     Dates: start: 20110413, end: 20110415
  3. METHYCOBAL [Concomitant]
     Indication: POST HERPETIC NEURALGIA
     Dosage: 750 UG, 1X/DAY
     Route: 048
     Dates: start: 20110413

REACTIONS (2)
  - RASH [None]
  - ERYTHEMA [None]
